FAERS Safety Report 4325955-5 (Version None)
Quarter: 2004Q1

REPORT INFORMATION
  Report Type: 
  Country: None (occurrence: None)
  Receive Date: 20040329
  Receipt Date: 20040119
  Transmission Date: 20041129
  Serious: Yes (Other)
  Sender: FDA-Public Use
  Company Number: US-GLAXOSMITHKLINE-A0494894A

PATIENT
  Age: 49 Year
  Sex: Female
  Weight: 108.2 kg

DRUGS (5)
  1. WELLBUTRIN [Suspect]
     Indication: DEPRESSION
     Dosage: 200MG TWICE PER DAY
     Route: 048
     Dates: start: 20030701, end: 20040114
  2. NEURONTIN [Concomitant]
     Indication: ANXIETY
     Dosage: 1800MG PER DAY
     Route: 048
     Dates: start: 20020601, end: 20040114
  3. STRATTERA [Concomitant]
     Indication: ATTENTION DEFICIT/HYPERACTIVITY DISORDER
     Route: 048
     Dates: start: 20031112, end: 20040114
  4. ZYPREXA [Concomitant]
     Indication: AFFECTIVE DISORDER
     Dosage: 10MG AT NIGHT
     Route: 048
     Dates: start: 20031112
  5. TRAZODONE HCL [Concomitant]

REACTIONS (1)
  - ELECTROCARDIOGRAM QT PROLONGED [None]
